FAERS Safety Report 9436759 (Version 3)
Quarter: 2013Q4

REPORT INFORMATION
  Report Type: Spontaneous
  Country: US (occurrence: US)
  Receive Date: 20130802
  Receipt Date: 20131018
  Transmission Date: 20140711
  Serious: Yes (Other)
  Sender: FDA-Public Use
  Company Number: US-JNJFOC-20130713893

PATIENT
  Age: 62 Year
  Sex: Female
  Weight: 111.13 kg

DRUGS (16)
  1. FENTNAYL TRANSDERMAL SYSTEM [Suspect]
     Indication: SPINAL COLUMN STENOSIS
     Route: 062
  2. FENTNAYL TRANSDERMAL SYSTEM [Suspect]
     Indication: FIBROMYALGIA
     Route: 062
  3. DURAGESIC [Suspect]
     Indication: SPINAL COLUMN STENOSIS
     Dosage: NDC50458094
     Route: 062
  4. DURAGESIC [Suspect]
     Indication: FIBROMYALGIA
     Dosage: NDC50458094
     Route: 062
  5. POTASSIUM CHLORIDE [Concomitant]
     Indication: PRODUCT USED FOR UNKNOWN INDICATION
     Route: 048
     Dates: start: 2008
  6. LEVETIRACETAM [Concomitant]
     Indication: CONVULSION
     Route: 048
     Dates: start: 2008
  7. LASIX [Concomitant]
     Indication: PRODUCT USED FOR UNKNOWN INDICATION
     Route: 048
     Dates: start: 2008
  8. HYDROXYZINE HCL [Concomitant]
     Indication: PRURITUS
     Route: 065
     Dates: start: 2010
  9. MELOXICAM [Concomitant]
     Indication: PRODUCT USED FOR UNKNOWN INDICATION
     Route: 048
     Dates: start: 2008
  10. CARBO-LEVO [Concomitant]
     Indication: RESTLESS LEGS SYNDROME
     Dosage: 10-100 MG
     Route: 065
  11. SINGULAIR [Concomitant]
     Indication: CHRONIC OBSTRUCTIVE PULMONARY DISEASE
     Route: 048
     Dates: start: 2008
  12. OMEPRAZOLE [Concomitant]
     Indication: PRODUCT USED FOR UNKNOWN INDICATION
     Route: 048
     Dates: start: 2008
  13. CYCLOBENZAPRINE [Concomitant]
     Indication: SLEEP DISORDER
     Dosage: AT BED TIME
     Route: 048
     Dates: start: 2008
  14. FLUOXETINE [Concomitant]
     Indication: PRODUCT USED FOR UNKNOWN INDICATION
     Route: 048
     Dates: start: 2008
  15. MAXALT [Concomitant]
     Indication: MIGRAINE
     Route: 048
     Dates: start: 2008
  16. VALTREX [Concomitant]
     Indication: SKIN DISORDER
     Dosage: AS NEEDED FOR 3 DAYS
     Route: 048
     Dates: start: 2008

REACTIONS (5)
  - Nephrolithiasis [Unknown]
  - Product quality issue [Unknown]
  - Wrong technique in drug usage process [Not Recovered/Not Resolved]
  - Therapeutic response decreased [Recovered/Resolved]
  - Product quality issue [Unknown]
